FAERS Safety Report 10573033 (Version 2)
Quarter: 2014Q4

REPORT INFORMATION
  Report Type: Spontaneous
  Country: GB (occurrence: None)
  Receive Date: 20141106
  Receipt Date: 20141208
  Transmission Date: 20150529
  Serious: Yes (Life-Threatening)
  Sender: FDA-Public Use
  Company Number: GB-H14001-14-01358

PATIENT
  Age: 54 Year
  Sex: Male

DRUGS (5)
  1. CHLORHEXIDINE GLUCONATE. [Concomitant]
     Active Substance: CHLORHEXIDINE GLUCONATE
  2. RIFAMPICIN [Concomitant]
     Active Substance: RIFAMPIN
  3. ALFENTANIL [Concomitant]
     Active Substance: ALFENTANIL
  4. PROPOFOL. [Concomitant]
     Active Substance: PROPOFOL
  5. LEVOFLOXACIN. [Suspect]
     Active Substance: LEVOFLOXACIN
     Indication: LEGIONELLA INFECTION
     Route: 042
     Dates: start: 20141007, end: 20141016

REACTIONS (2)
  - Cardiac arrest [None]
  - Pulseless electrical activity [None]

NARRATIVE: CASE EVENT DATE: 20141016
